FAERS Safety Report 9913420 (Version 3)
Quarter: 2014Q2

REPORT INFORMATION
  Report Type: Report from Study
  Country: JP (occurrence: JP)
  Receive Date: 20140220
  Receipt Date: 20140515
  Transmission Date: 20141212
  Serious: Yes (Hospitalization, Other)
  Sender: FDA-Public Use
  Company Number: JP-ASTELLAS-2014US001686

PATIENT
  Age: 61 Year
  Sex: Male
  Weight: 58 kg

DRUGS (33)
  1. AMPHOTERICIN B [Suspect]
     Indication: FEBRILE NEUTROPENIA
     Route: 041
     Dates: start: 20121024, end: 20121106
  2. PROGRAF [Suspect]
     Indication: PRODUCT USED FOR UNKNOWN INDICATION
     Dosage: UNK, UNKNOWN FREQ.
     Route: 041
     Dates: end: 20121029
  3. PROGRAF [Suspect]
     Route: 041
     Dates: start: 20121029
  4. VANCOMYCIN HYDROCHLORIDE [Suspect]
     Indication: PRODUCT USED FOR UNKNOWN INDICATION
     Dosage: 0.75 G, TWICE DAILY
     Route: 041
     Dates: start: 20121027, end: 20121028
  5. VANCOMYCIN HYDROCHLORIDE [Suspect]
     Dosage: 0.5 G, TWICE DAILY
     Route: 041
     Dates: start: 20121029, end: 20121031
  6. VANCOMYCIN HYDROCHLORIDE [Suspect]
     Dosage: 0.75 G, ONCE DAILY
     Route: 041
     Dates: start: 20121031, end: 20121105
  7. PREDNISOLONE [Concomitant]
     Indication: PRODUCT USED FOR UNKNOWN INDICATION
     Dosage: UNK, UNKNOWN FREQ.
     Route: 065
  8. IRRADIATED PLATELET CONCENTRATE, LEUKOCYTES R [Concomitant]
     Indication: PRODUCT USED FOR UNKNOWN INDICATION
     Dosage: UNK, UNKNOWN FREQ.
     Route: 065
  9. RECOMODULIN [Concomitant]
     Indication: FIBRIN DEGRADATION PRODUCTS INCREASED
     Dosage: UNK, UNKNOWN FREQ.
     Route: 065
     Dates: start: 20121024
  10. RED BLOOD CELLS, CONCENTRATED [Concomitant]
     Indication: PRODUCT USED FOR UNKNOWN INDICATION
     Dosage: UNK, UNKNOWN FREQ.
     Route: 065
     Dates: start: 20121025
  11. ALBUMIN [Concomitant]
     Indication: PRODUCT USED FOR UNKNOWN INDICATION
     Dosage: UNK, UNKNOWN FREQ.
     Route: 065
     Dates: start: 20121028
  12. ALBUMIN [Concomitant]
     Dosage: UNK, UNKNOWN FREQ.
     Route: 065
     Dates: start: 20121128
  13. LASIX [Concomitant]
     Indication: WEIGHT INCREASED
     Dosage: UNK, UNKNOWN FREQ.
     Route: 065
     Dates: start: 20121028
  14. LASIX [Concomitant]
     Indication: PLEURAL EFFUSION
     Dosage: UNK, UNKNOWN FREQ.
     Route: 065
     Dates: start: 20121128
  15. POLARAMINE [Concomitant]
     Indication: PRODUCT USED FOR UNKNOWN INDICATION
     Dosage: UNK, UNKNOWN FREQ.
     Route: 065
  16. FENTANYL CITRATE [Concomitant]
     Indication: PRODUCT USED FOR UNKNOWN INDICATION
     Dosage: UNK, UNKNOWN FREQ.
     Route: 065
  17. ACTIOS [Concomitant]
     Indication: PRODUCT USED FOR UNKNOWN INDICATION
     Dosage: UNK, UNKNOWN FREQ.
     Route: 065
  18. FOSCAVIR [Concomitant]
     Indication: ENCEPHALITIS VIRAL
     Dosage: UNK, UNKNOWN FREQ.
     Route: 065
     Dates: start: 20121105
  19. NEUART [Concomitant]
     Indication: PRODUCT USED FOR UNKNOWN INDICATION
     Dosage: UNK, UNKNOWN FREQ.
     Route: 065
  20. HANP [Concomitant]
     Indication: WEIGHT INCREASED
     Dosage: UNK UNK, UNKNOWN FREQ.
     Route: 065
     Dates: start: 20121028
  21. HANP [Concomitant]
     Indication: PLEURAL EFFUSION
     Route: 065
     Dates: start: 20121128
  22. HYDROCORTONE [Concomitant]
     Indication: ENGRAFTMENT SYNDROME
     Dosage: UNK, UNKNOWN FREQ.
     Route: 065
     Dates: start: 20121102
  23. FUNGUARD [Concomitant]
     Indication: PRODUCT USED FOR UNKNOWN INDICATION
     Dosage: UNK, UNKNOWN FREQ.
     Route: 065
     Dates: start: 20121011, end: 20121024
  24. OMEPRAZOLE SODIUM [Concomitant]
     Indication: PRODUCT USED FOR UNKNOWN INDICATION
     Dosage: UNK, UNKNOWN FREQ.
     Route: 065
  25. DALTEPARIN SODIUM [Concomitant]
     Indication: PRODUCT USED FOR UNKNOWN INDICATION
     Dosage: UNK, UNKNOWN FREQ.
     Route: 065
  26. METHOTREXATE [Concomitant]
     Indication: PRODUCT USED FOR UNKNOWN INDICATION
     Dosage: UNK, UNKNOWN FREQ.
     Route: 065
     Dates: start: 20121017, end: 20121028
  27. GRAN [Concomitant]
     Indication: PRODUCT USED FOR UNKNOWN INDICATION
     Dosage: UNK, UNKNOWN FREQ.
     Route: 065
     Dates: start: 20121021, end: 20121102
  28. FINIBAX [Concomitant]
     Indication: PRODUCT USED FOR UNKNOWN INDICATION
     Dosage: UNK, UNKNOWN FREQ.
     Route: 065
     Dates: start: 20121024, end: 20121107
  29. NOVOLIN R [Concomitant]
     Indication: HYPERGLYCAEMIA
     Dosage: UNK, UNKNOWN FREQ.
     Route: 065
     Dates: start: 20121024
  30. BAKTAR [Concomitant]
     Indication: PRODUCT USED FOR UNKNOWN INDICATION
     Route: 065
     Dates: start: 20121004, end: 20121014
  31. FLUCONAZOLE [Concomitant]
     Indication: PRODUCT USED FOR UNKNOWN INDICATION
     Dosage: UNK, UNKNOWN FREQ.
     Route: 065
     Dates: start: 20121004, end: 20121024
  32. POTELIGEO [Concomitant]
     Indication: ADULT T-CELL LYMPHOMA/LEUKAEMIA REFRACTORY
     Dosage: UNK, UNKNOWN FREQ.
     Route: 065
     Dates: start: 201206
  33. VENILON I [Concomitant]
     Indication: PRODUCT USED FOR UNKNOWN INDICATION
     Dosage: UNK UNK, UNKNOWN FREQ.
     Route: 065
     Dates: start: 20121106, end: 20121107

REACTIONS (10)
  - Renal impairment [Not Recovered/Not Resolved]
  - Hepatic function abnormal [Recovered/Resolved]
  - Engraftment syndrome [Recovered/Resolved]
  - Sensory disturbance [Recovering/Resolving]
  - Weight increased [Recovered/Resolved]
  - Fibrin degradation products increased [Recovered/Resolved]
  - Depressed level of consciousness [Recovering/Resolving]
  - Anaemia [Not Recovered/Not Resolved]
  - Pleural effusion [Recovered/Resolved]
  - Hyperglycaemia [Recovering/Resolving]
